FAERS Safety Report 22630383 (Version 1)
Quarter: 2023Q2

REPORT INFORMATION
  Report Type: Report from Study
  Country: US (occurrence: US)
  Receive Date: 20230622
  Receipt Date: 20230622
  Transmission Date: 20230721
  Serious: Yes (Hospitalization, Other)
  Sender: FDA-Public Use
  Company Number: US-ABBVIE-5299431

PATIENT
  Age: 58 Year
  Sex: Male

DRUGS (1)
  1. HUMIRA [Suspect]
     Active Substance: ADALIMUMAB
     Indication: Product used for unknown indication
     Route: 058

REACTIONS (5)
  - Crohn^s disease [Unknown]
  - Bedridden [Recovered/Resolved]
  - Drug ineffective [Recovering/Resolving]
  - Large intestine polyp [Recovered/Resolved]
  - Impaired work ability [Unknown]

NARRATIVE: CASE EVENT DATE: 20220801
